FAERS Safety Report 5370130-9 (Version None)
Quarter: 2007Q2

REPORT INFORMATION
  Report Type: 
  Country: None (occurrence: None)
  Receive Date: 20070614
  Receipt Date: 20070309
  Transmission Date: 20071010
  Serious: Yes (Hospitalization)
  Sender: FDA-Public Use
  Company Number: BDI-009230

PATIENT
  Age: 80 Year
  Sex: Male

DRUGS (3)
  1. MULTIHANCE [Suspect]
     Indication: MENTAL STATUS CHANGES
     Dosage: 18 ML ONCE IV
     Route: 042
     Dates: start: 20070302, end: 20070302
  2. MULTIHANCE [Suspect]
     Indication: NUCLEAR MAGNETIC RESONANCE IMAGING BRAIN
     Dosage: 18 ML ONCE IV
     Route: 042
     Dates: start: 20070302, end: 20070302
  3. MULTIHANCE [Suspect]
     Indication: PUPILS UNEQUAL
     Dosage: 18 ML ONCE IV
     Route: 042
     Dates: start: 20070302, end: 20070302

REACTIONS (3)
  - COUGH [None]
  - DYSPNOEA [None]
  - ERYTHEMA [None]
